FAERS Safety Report 15677601 (Version 6)
Quarter: 2019Q4

REPORT INFORMATION
  Report Type: Report from Study
  Country: US (occurrence: US)
  Receive Date: 20181130
  Receipt Date: 20191016
  Transmission Date: 20200122
  Serious: Yes (Hospitalization)
  Sender: FDA-Public Use
  Company Number: US-ACTELION-A-NJ2018-169899

PATIENT
  Age: 81 Year
  Sex: Female

DRUGS (3)
  1. LASIX [Concomitant]
     Active Substance: FUROSEMIDE
  2. OPSUMIT [Suspect]
     Active Substance: MACITENTAN
     Indication: PULMONARY ARTERIAL HYPERTENSION
     Dosage: 10 MG, QD
     Route: 048
     Dates: start: 20180103
  3. ZAROXOLYN [Concomitant]
     Active Substance: METOLAZONE
     Dosage: UNK
     Dates: start: 20180821

REACTIONS (11)
  - Mental disorder [Unknown]
  - Gout [Unknown]
  - Hospitalisation [Unknown]
  - Dehydration [Unknown]
  - Blood pressure abnormal [Unknown]
  - Swelling face [Unknown]
  - Dementia [Unknown]
  - Eye swelling [Unknown]
  - Fluid retention [Unknown]
  - Dyskinesia [Not Recovered/Not Resolved]
  - Multiple allergies [Unknown]

NARRATIVE: CASE EVENT DATE: 20181020
